FAERS Safety Report 25506688 (Version 1)
Quarter: 2025Q3

REPORT INFORMATION
  Report Type: Spontaneous
  Country: EG (occurrence: EG)
  Receive Date: 20250702
  Receipt Date: 20250702
  Transmission Date: 20251021
  Serious: Yes (Death, Hospitalization)
  Sender: ELI LILLY AND COMPANY
  Company Number: EG-ELI_LILLY_AND_COMPANY-EG202503014751

PATIENT
  Age: 49 Year
  Sex: Female

DRUGS (1)
  1. CYRAMZA [Suspect]
     Active Substance: RAMUCIRUMAB
     Indication: Metastatic gastric cancer
     Route: 042
     Dates: start: 202503

REACTIONS (3)
  - Blood pressure decreased [Fatal]
  - Blood glucose decreased [Fatal]
  - Poor peripheral circulation [Fatal]

NARRATIVE: CASE EVENT DATE: 20250523
